FAERS Safety Report 9113325 (Version 1)
Quarter: 2013Q1

REPORT INFORMATION
  Report Type: Spontaneous
  Country: US (occurrence: US)
  Receive Date: 20130211
  Receipt Date: 20130211
  Transmission Date: 20140127
  Serious: No
  Sender: FDA-Public Use
  Company Number: US-BAYER-2013-006764

PATIENT
  Age: 77 Year
  Sex: Female

DRUGS (3)
  1. AVELOX [Suspect]
     Indication: VIRAL INFECTION
     Dosage: 400 MG, QD
     Route: 048
     Dates: start: 20130109, end: 20130111
  2. PREDNISONE [Concomitant]
  3. ADVAIR [Concomitant]

REACTIONS (4)
  - Blood blister [Recovering/Resolving]
  - Contusion [Recovering/Resolving]
  - Pain in extremity [Recovering/Resolving]
  - Off label use [None]
